FAERS Safety Report 23665094 (Version 2)
Quarter: 2024Q1

REPORT INFORMATION
  Report Type: Spontaneous
  Country: US (occurrence: US)
  Receive Date: 20240322
  Receipt Date: 20240327
  Transmission Date: 20240409
  Serious: No
  Sender: FDA-Public Use
  Company Number: US-PFIZER INC-PV202400034217

PATIENT
  Age: 69 Year
  Sex: Male

DRUGS (2)
  1. BRAFTOVI [Suspect]
     Active Substance: ENCORAFENIB
     Indication: Non-small cell lung cancer
     Dosage: 450 MG, DAILY
     Route: 048
  2. MEKTOVI [Suspect]
     Active Substance: BINIMETINIB
     Indication: Non-small cell lung cancer
     Dosage: APPROXIMATELY 12 HOURS APART. TAKE WITH OR WITHOUT FOOD
     Route: 048

REACTIONS (1)
  - Visual impairment [Unknown]
